FAERS Safety Report 21945734 (Version 1)
Quarter: 2023Q1

REPORT INFORMATION
  Report Type: Spontaneous
  Country: US (occurrence: US)
  Receive Date: 20230202
  Receipt Date: 20230202
  Transmission Date: 20230418
  Serious: No
  Sender: FDA-Public Use
  Company Number: US-SA-SAC20230201000035

PATIENT
  Age: 81 Year
  Sex: Female
  Weight: 81 kg

DRUGS (1)
  1. AUBAGIO [Suspect]
     Active Substance: TERIFLUNOMIDE
     Indication: Multiple sclerosis
     Dosage: 14 MG, QD
     Route: 048

REACTIONS (7)
  - Incontinence [Unknown]
  - Sleep disorder [Unknown]
  - Peripheral swelling [Unknown]
  - COVID-19 [Unknown]
  - Gait disturbance [Unknown]
  - Bladder disorder [Unknown]
  - Diarrhoea [Unknown]
